FAERS Safety Report 9052493 (Version 1)
Quarter: 2013Q1

REPORT INFORMATION
  Report Type: Report from Study
  Country: GR (occurrence: GR)
  Receive Date: 20130207
  Receipt Date: 20130207
  Transmission Date: 20140127
  Serious: Yes (Other)
  Sender: FDA-Public Use
  Company Number: GR-US-EMD SERONO, INC.-7191655

PATIENT
  Age: 14 Year
  Sex: Male

DRUGS (2)
  1. SAIZEN [Suspect]
     Indication: GROWTH HORMONE DEFICIENCY
     Dosage: 9 MG/ WEEKLY
     Route: 058
     Dates: start: 201105, end: 201208
  2. SAIZEN [Suspect]
     Dosage: 9MG / WEEKLY
     Route: 058
     Dates: start: 20130202

REACTIONS (1)
  - Osteochondritis [Recovered/Resolved]
